FAERS Safety Report 22243538 (Version 1)
Quarter: 2023Q2

REPORT INFORMATION
  Report Type: Spontaneous
  Country: IT (occurrence: IT)
  Receive Date: 20230424
  Receipt Date: 20230424
  Transmission Date: 20230721
  Serious: Yes (Other)
  Sender: FDA-Public Use
  Company Number: IT-GILEAD-2023-0623616

PATIENT
  Age: 46 Year
  Sex: Male

DRUGS (1)
  1. TENOFOVIR DISOPROXIL [Suspect]
     Active Substance: TENOFOVIR DISOPROXIL
     Indication: HIV infection
     Dosage: 1 DOSAGE FORM, ONCE A DAY
     Route: 048

REACTIONS (15)
  - Suicidal ideation [Unknown]
  - Anxiety [Unknown]
  - Cough [Unknown]
  - Depression [Unknown]
  - Disturbance in attention [Unknown]
  - Dyspnoea [Unknown]
  - Fatigue [Unknown]
  - Feeling abnormal [Unknown]
  - Feeling cold [Unknown]
  - Feeling hot [Unknown]
  - Insomnia [Unknown]
  - Nightmare [Unknown]
  - Pain [Unknown]
  - Snoring [Unknown]
  - Somnolence [Unknown]
